FAERS Safety Report 13088846 (Version 1)
Quarter: 2016Q4

REPORT INFORMATION
  Report Type: Spontaneous
  Country: US (occurrence: US)
  Receive Date: 20161231
  Receipt Date: 20161231
  Transmission Date: 20170207
  Serious: Yes (Other)
  Sender: FDA-Public Use
  Company Number: None

PATIENT
  Age: 64 Year
  Sex: Female
  Weight: 94.5 kg

DRUGS (7)
  1. LABETALOL [Concomitant]
     Active Substance: LABETALOL\LABETALOL HYDROCHLORIDE
  2. SIMVASTATIN. [Concomitant]
     Active Substance: SIMVASTATIN
  3. ALDACTONE [Concomitant]
     Active Substance: SPIRONOLACTONE
  4. OXYBUTYNIN [Concomitant]
     Active Substance: OXYBUTYNIN
  5. LOSARTAN. [Concomitant]
     Active Substance: LOSARTAN
  6. MIDAZOLAM [Suspect]
     Active Substance: MIDAZOLAM\MIDAZOLAM HYDROCHLORIDE
     Indication: SEDATION
     Dosage: ?          OTHER FREQUENCY:DURING SURGERY;?
     Route: 042
     Dates: start: 20161228, end: 20161228
  7. METFORMIN [Concomitant]
     Active Substance: METFORMIN HYDROCHLORIDE

REACTIONS (2)
  - Feeling abnormal [None]
  - Dysphagia [None]

NARRATIVE: CASE EVENT DATE: 20161228
